FAERS Safety Report 20561438 (Version 1)
Quarter: 2022Q1

REPORT INFORMATION
  Report Type: Spontaneous
  Country: IN (occurrence: IN)
  Receive Date: 20220307
  Receipt Date: 20220307
  Transmission Date: 20220423
  Serious: Yes (Other)
  Sender: FDA-Public Use
  Company Number: IN-LUPIN LIMITED-2022-02741

PATIENT
  Age: 38 Year
  Sex: Female

DRUGS (5)
  1. LORAZEPAM [Suspect]
     Active Substance: LORAZEPAM
     Indication: Catatonia
     Dosage: 4 MG, QD (IN DIVIDED DOSES)
     Route: 065
  2. LORAZEPAM [Suspect]
     Active Substance: LORAZEPAM
     Indication: Acute psychosis
  3. METOPROLOL SUCCINATE [Suspect]
     Active Substance: METOPROLOL SUCCINATE
     Indication: Tachycardia
     Dosage: 25 MG, QD
     Route: 065
  4. OLANZAPINE [Suspect]
     Active Substance: OLANZAPINE
     Indication: Catatonia
     Dosage: 10 MG, QD
     Route: 048
  5. OLANZAPINE [Suspect]
     Active Substance: OLANZAPINE
     Indication: Acute psychosis

REACTIONS (3)
  - Drug ineffective for unapproved indication [Unknown]
  - Drug effective for unapproved indication [Unknown]
  - Off label use [Unknown]
